FAERS Safety Report 7595606-5 (Version None)
Quarter: 2011Q3

REPORT INFORMATION
  Report Type: 
  Country: None (occurrence: None)
  Receive Date: 20110707
  Receipt Date: 20110630
  Transmission Date: 20111222
  Serious: Yes (Hospitalization)
  Sender: FDA-Public Use
  Company Number: JP-GLAXOSMITHKLINE-B0723584A

PATIENT
  Sex: Female
  Weight: 40 kg

DRUGS (10)
  1. MUCOSTA [Concomitant]
     Indication: GASTRITIS PROPHYLAXIS
     Route: 048
     Dates: start: 20110108
  2. OXYCONTIN [Concomitant]
     Indication: PAIN
     Route: 048
     Dates: start: 20110108
  3. ZOLPIDEM [Concomitant]
     Indication: INSOMNIA
     Route: 048
     Dates: start: 20110203
  4. XELODA [Suspect]
     Indication: PRODUCT USED FOR UNKNOWN INDICATION
     Dosage: 2400MG PER DAY
     Route: 048
     Dates: start: 20110108, end: 20110203
  5. LOXONIN [Concomitant]
     Indication: PAIN
     Route: 048
     Dates: start: 20110108
  6. TYKERB [Suspect]
     Dosage: 1000MG PER DAY
     Route: 048
     Dates: start: 20110310, end: 20110311
  7. OXINORM [Concomitant]
     Indication: PAIN
     Route: 048
     Dates: start: 20110108
  8. TYKERB [Suspect]
     Indication: BREAST CANCER
     Dosage: 1250MG PER DAY
     Route: 048
     Dates: start: 20110107, end: 20110203
  9. XELODA [Suspect]
     Dosage: 1800MG PER DAY
     Route: 048
     Dates: start: 20110310, end: 20110311
  10. ALOSENN [Concomitant]
     Indication: CONSTIPATION
     Route: 048
     Dates: start: 20110109, end: 20110110

REACTIONS (2)
  - JAUNDICE [None]
  - HEPATIC FUNCTION ABNORMAL [None]
